FAERS Safety Report 17882043 (Version 1)
Quarter: 2020Q2

REPORT INFORMATION
  Report Type: Spontaneous
  Country: US (occurrence: US)
  Receive Date: 20200610
  Receipt Date: 20200610
  Transmission Date: 20200714
  Serious: No
  Sender: FDA-Public Use
  Company Number: US-SEPTODONT-201905663

PATIENT
  Age: 16 Year
  Sex: Male

DRUGS (1)
  1. SEPTOCAINE [Suspect]
     Active Substance: ARTICAINE HYDROCHLORIDE\EPINEPHRINE BITARTRATE
     Indication: DENTAL LOCAL ANAESTHESIA
     Dates: start: 20191216, end: 20191216

REACTIONS (1)
  - Drug ineffective [Recovered/Resolved]

NARRATIVE: CASE EVENT DATE: 20191216
